FAERS Safety Report 8385453-9 (Version None)
Quarter: 2012Q2

REPORT INFORMATION
  Report Type: 
  Country: None (occurrence: None)
  Receive Date: 20120525
  Receipt Date: 20120516
  Transmission Date: 20120825
  Serious: No
  Sender: FDA-Public Use
  Company Number: US-BIOGENIDEC-2012BI017817

PATIENT
  Sex: Female

DRUGS (2)
  1. TYSABRI [Suspect]
     Route: 042
     Dates: start: 20110725, end: 20110921
  2. TYSABRI [Suspect]
     Indication: MULTIPLE SCLEROSIS
     Route: 042
     Dates: start: 20071119, end: 20080328

REACTIONS (4)
  - MIGRAINE [None]
  - ARNOLD-CHIARI MALFORMATION [None]
  - INTRACRANIAL PRESSURE INCREASED [None]
  - APHAGIA [None]
